FAERS Safety Report 6312636-1 (Version None)
Quarter: 2009Q3

REPORT INFORMATION
  Report Type: 
  Country: None (occurrence: None)
  Receive Date: 20090814
  Receipt Date: 20090802
  Transmission Date: 20100115
  Serious: Yes (Other)
  Sender: FDA-Public Use
  Company Number: CHPA2009US16548

PATIENT
  Age: 37 Year
  Sex: Female

DRUGS (9)
  1. NODOZ (NCH) (CAFFEINE) CAPLET [Suspect]
     Dosage: 2 DF, ONCE/SINGLE, ORAL 1 DF, ONCE/SINGE, VIA FALSA
     Route: 048
     Dates: start: 20090802, end: 20090802
  2. NODOZ (NCH) (CAFFEINE) CAPLET [Suspect]
     Dosage: 2 DF, ONCE/SINGLE, ORAL 1 DF, ONCE/SINGE, VIA FALSA
     Route: 048
     Dates: start: 20090802, end: 20090802
  3. OXYCONTIN [Suspect]
     Dosage: ORAL
     Route: 048
  4. METHADONE HCL [Suspect]
  5. METHYLENEDIOXYMETHAMPHETAMINE (METHYLENEDIOXYMETHAMPHETAMINE) [Suspect]
     Dosage: 3 DF,  ORAL
     Route: 048
  6. XANAX [Concomitant]
  7. RITALIN [Concomitant]
  8. ATIVAN [Concomitant]
  9. DEMEROL [Concomitant]

REACTIONS (7)
  - CLITORAL ENGORGEMENT [None]
  - DRUG ABUSE [None]
  - ENERGY INCREASED [None]
  - INCORRECT ROUTE OF DRUG ADMINISTRATION [None]
  - LIBIDO INCREASED [None]
  - OVERDOSE [None]
  - WRONG TECHNIQUE IN DRUG USAGE PROCESS [None]
